FAERS Safety Report 5085480-3 (Version None)
Quarter: 2006Q3

REPORT INFORMATION
  Report Type: 
  Country: None (occurrence: None)
  Receive Date: 20060731
  Receipt Date: 20060306
  Transmission Date: 20061208
  Serious: Yes (Hospitalization)
  Sender: FDA-Public Use
  Company Number: 200610483BWH

PATIENT
  Age: 62 Year
  Sex: Female
  Weight: 63.05 kg

DRUGS (6)
  1. AVELOX [Suspect]
     Indication: BRONCHITIS
     Dosage: 400 MG, QD, ORAL
     Route: 048
  2. LEVAPAK (LEVOFLOXACIN) [Suspect]
     Indication: BRONCHITIS
     Dosage: 750 MG, QD, ORAL
     Route: 048
  3. EVISTA [Concomitant]
  4. FOSAMAX [Concomitant]
  5. VIT E [Concomitant]
  6. MV [Concomitant]

REACTIONS (1)
  - CLOSTRIDIUM COLITIS [None]
